FAERS Safety Report 5957975-9 (Version None)
Quarter: 2008Q4

REPORT INFORMATION
  Report Type: 
  Country: None (occurrence: None)
  Receive Date: 20081119
  Receipt Date: 20081105
  Transmission Date: 20090506
  Serious: Yes (Hospitalization)
  Sender: FDA-Public Use
  Company Number: US-ELI_LILLY_AND_COMPANY-US200811001022

PATIENT
  Sex: Female

DRUGS (8)
  1. FORTEO [Suspect]
     Dosage: UNK, UNK
     Dates: start: 20080901, end: 20080101
  2. METFORMIN HCL [Concomitant]
     Indication: BLOOD GLUCOSE ABNORMAL
  3. PREDNISONE [Concomitant]
  4. ADVAIR DISKUS 100/50 [Concomitant]
  5. SPIRIVA [Concomitant]
  6. CALTRATE + VITAMIN D [Concomitant]
     Dosage: 600 MG, UNK
  7. VITAMIN E [Concomitant]
  8. VITAMIN D [Concomitant]

REACTIONS (3)
  - HERPES VIRUS INFECTION [None]
  - PNEUMONIA [None]
  - VAGINAL DISCHARGE [None]
